FAERS Safety Report 15229747 (Version 1)
Quarter: 2018Q4

REPORT INFORMATION
  Report Type: Spontaneous
  Country: US (occurrence: US)
  Receive Date: 20180802
  Receipt Date: 20180802
  Transmission Date: 20190204
  Serious: Yes (Other)
  Sender: FDA-Public Use
  Company Number: US-ACCORD-062270

PATIENT
  Age: 35 Year
  Sex: Female
  Weight: 75.3 kg

DRUGS (7)
  1. DOCETAXEL ACCORD [Suspect]
     Active Substance: DOCETAXEL
     Indication: BREAST CANCER STAGE I
     Dosage: NO OF CYCLE: 4
     Route: 042
     Dates: start: 20110803, end: 20111005
  2. CYANOCOBALAMIN. [Concomitant]
     Active Substance: CYANOCOBALAMIN
     Dates: start: 20110101
  3. LISINOPRIL. [Concomitant]
     Active Substance: LISINOPRIL
     Dates: start: 20100101
  4. BIOTIN [Concomitant]
     Active Substance: BIOTIN
     Dates: start: 201112
  5. CYCLOPHOSPHAMIDE/CYCLOPHOSPHAMIDE MONOHYDRATE [Suspect]
     Active Substance: CYCLOPHOSPHAMIDE
     Indication: BREAST CANCER STAGE I
     Dosage: NO OF CYCLE:04
     Dates: start: 20110803, end: 20111005
  6. ALLEGRA-D [Concomitant]
     Active Substance: FEXOFENADINE\PSEUDOEPHEDRINE
     Dates: start: 20030101
  7. TAMOXIFEN/TAMOXIFEN CITRATE [Concomitant]
     Dates: start: 20111001, end: 20141215

REACTIONS (1)
  - Alopecia [Not Recovered/Not Resolved]

NARRATIVE: CASE EVENT DATE: 20120401
